FAERS Safety Report 6822330-6 (Version None)
Quarter: 2010Q3

REPORT INFORMATION
  Report Type: 
  Country: None (occurrence: None)
  Receive Date: 20100708
  Receipt Date: 20100629
  Transmission Date: 20110219
  Serious: Yes (Disabling)
  Sender: FDA-Public Use
  Company Number: JP-ASTRAZENECA-2010SE29298

PATIENT
  Age: 75 Year
  Sex: Female
  Weight: 40 kg

DRUGS (10)
  1. IRESSA [Suspect]
     Indication: NON-SMALL CELL LUNG CANCER
     Route: 048
     Dates: start: 20100531
  2. PARAPLATIN [Suspect]
     Indication: NON-SMALL CELL LUNG CANCER
     Route: 041
     Dates: start: 20100531, end: 20100531
  3. ALIMTA [Suspect]
     Indication: NON-SMALL CELL LUNG CANCER
     Route: 041
     Dates: start: 20100531, end: 20100531
  4. CRESTOR [Concomitant]
     Indication: HYPERLIPIDAEMIA
     Route: 048
     Dates: start: 20070101
  5. TOWARAT-CR [Concomitant]
     Indication: HYPERTENSION
     Route: 048
     Dates: start: 20070101
  6. PANVITAN [Concomitant]
     Indication: PREMEDICATION
     Route: 048
     Dates: start: 20100525
  7. METHYCOBAL [Concomitant]
     Indication: PREMEDICATION
     Route: 030
     Dates: start: 20100525, end: 20100525
  8. KYTRIL [Concomitant]
     Indication: PROPHYLAXIS OF NAUSEA AND VOMITING
     Route: 041
     Dates: start: 20100531, end: 20100531
  9. DECADRON [Concomitant]
     Indication: PROPHYLAXIS OF NAUSEA AND VOMITING
     Route: 041
     Dates: start: 20100531, end: 20100531
  10. PURSENNID [Concomitant]
     Indication: CONSTIPATION
     Route: 048

REACTIONS (1)
  - CEREBRAL INFARCTION [None]
